FAERS Safety Report 26040401 (Version 3)
Quarter: 2025Q4

REPORT INFORMATION
  Report Type: Report from Study
  Country: EU (occurrence: EU)
  Receive Date: 20251113
  Receipt Date: 20251214
  Transmission Date: 20260117
  Serious: Yes (Death, Life-Threatening, Other)
  Sender: TAKEDA
  Company Number: EU-TAKEDA-2025TUS100956

PATIENT
  Sex: Female

DRUGS (1)
  1. FRUQUINTINIB [Suspect]
     Active Substance: FRUQUINTINIB
     Indication: Colorectal cancer metastatic
     Dosage: 5 MILLIGRAM

REACTIONS (3)
  - Death [Fatal]
  - Respiratory distress [Unknown]
  - Colorectal cancer metastatic [Unknown]

NARRATIVE: CASE EVENT DATE: 20250330
